FAERS Safety Report 21719141 (Version 5)
Quarter: 2023Q1

REPORT INFORMATION
  Report Type: Spontaneous
  Country: US (occurrence: US)
  Receive Date: 20221213
  Receipt Date: 20230217
  Transmission Date: 20230418
  Serious: Yes (Hospitalization)
  Sender: FDA-Public Use
  Company Number: US-UNITED THERAPEUTICS-UNT-2022-029859

PATIENT
  Age: 87 Year
  Sex: Female
  Weight: 53.968 kg

DRUGS (3)
  1. TYVASO [Suspect]
     Active Substance: TREPROSTINIL
     Indication: Pulmonary arterial hypertension
     Dosage: 36 ?G, QID
     Dates: start: 2022
  2. TYVASO [Suspect]
     Active Substance: TREPROSTINIL
     Dosage: 36 ?G, QID
  3. TYVASO [Suspect]
     Active Substance: TREPROSTINIL
     Dosage: UNK
     Dates: start: 20220617

REACTIONS (15)
  - Abdominal discomfort [Unknown]
  - Urinary tract infection [Unknown]
  - Constipation [Unknown]
  - Pain in extremity [Unknown]
  - Abdominal pain [Not Recovered/Not Resolved]
  - Dizziness [Unknown]
  - Back pain [Unknown]
  - Musculoskeletal chest pain [Not Recovered/Not Resolved]
  - Fluid retention [Unknown]
  - Rhinovirus infection [Unknown]
  - Hypertension [Unknown]
  - Diarrhoea [Unknown]
  - Vomiting [Unknown]
  - Dehydration [Unknown]
  - Flushing [Unknown]

NARRATIVE: CASE EVENT DATE: 20221203
